FAERS Safety Report 9775632 (Version 7)
Quarter: 2014Q2

REPORT INFORMATION
  Report Type: Spontaneous
  Country: GB (occurrence: None)
  Receive Date: 20131218
  Receipt Date: 20140429
  Transmission Date: 20141212
  Serious: Yes (Death, Other)
  Sender: FDA-Public Use
  Company Number: AUR-APL-2013-10570

PATIENT
  Age: 73 Year
  Sex: Male

DRUGS (6)
  1. RAMIPRIL (RAMIPRIL) [Suspect]
     Indication: MYOCARDIAL ISCHAEMIA
     Route: 048
  2. BISOPROLOL (BISOPROLOL) [Suspect]
     Indication: MYOCARDIAL ISCHAEMIA
     Route: 048
  3. TICAGRELOR [Suspect]
     Indication: CORONARY ARTERY DISEASE
     Dosage: 180 MG (90 MG,2 IN 1 D),ORAL
     Route: 048
     Dates: start: 20110608
  4. ASA (ACETYLSALICYLIC ACID) [Concomitant]
  5. ATORVASTATIN (ATORVASTATIN) [Concomitant]
  6. GLYCERYL TRINITRATE (GLYCERYL TRINITRATE) [Concomitant]

REACTIONS (5)
  - Shock [None]
  - Haemorrhage [None]
  - Completed suicide [None]
  - Laceration [None]
  - Intentional self-injury [None]
